FAERS Safety Report 9610953 (Version 1)
Quarter: 2013Q4

REPORT INFORMATION
  Report Type: Spontaneous
  Country: FR (occurrence: FR)
  Receive Date: 20131009
  Receipt Date: 20131009
  Transmission Date: 20140711
  Serious: Yes (Hospitalization)
  Sender: FDA-Public Use
  Company Number: PHHY2013FR113184

PATIENT
  Age: 59 Year
  Sex: Female

DRUGS (7)
  1. TEGRETOL [Suspect]
     Indication: EPILEPSY
     Dosage: UNK UKN, UNK
     Dates: start: 20130822, end: 20130905
  2. KEPPRA [Concomitant]
     Indication: EPILEPSY
     Dosage: UNK UKN, UNK
  3. URBANYL [Concomitant]
     Indication: EPILEPSY
     Dosage: UNK UKN, UNK
  4. LEVOTHYROX [Concomitant]
     Dosage: UNK UKN, UNK
  5. HEPARIN CALCIUM [Concomitant]
     Dosage: UNK UKN, UNK
  6. INEXIUM//ESOMEPRAZOLE MAGNESIUM [Concomitant]
     Dosage: UNK UKN, UNK
  7. ORACILLINE [Concomitant]
     Dosage: UNK UKN, UNK
     Dates: start: 201307

REACTIONS (2)
  - Hepatocellular injury [Recovering/Resolving]
  - Cholestasis [Recovering/Resolving]
